FAERS Safety Report 11082382 (Version 2)
Quarter: 2015Q2

REPORT INFORMATION
  Report Type: Spontaneous
  Country: US (occurrence: US)
  Receive Date: 20150501
  Receipt Date: 20150504
  Transmission Date: 20150821
  Serious: Yes (Death, Other)
  Sender: FDA-Public Use
  Company Number: US-ELI_LILLY_AND_COMPANY-US201504009078

PATIENT
  Age: 49 Year
  Sex: Female

DRUGS (4)
  1. PACLITAXEL. [Concomitant]
     Active Substance: PACLITAXEL
     Indication: CERVIX CARCINOMA
     Dosage: UNK, UNKNOWN
     Route: 065
     Dates: start: 2012, end: 2013
  2. IRINOTECAN [Concomitant]
     Active Substance: IRINOTECAN
     Indication: CERVIX CARCINOMA
     Dosage: UNK, UNKNOWN
     Route: 065
     Dates: start: 2012, end: 2013
  3. ALIMTA [Suspect]
     Active Substance: PEMETREXED DISODIUM
     Indication: CERVIX CARCINOMA
     Dosage: 900 MG/M2, CYCLICAL
     Route: 042
     Dates: start: 20140423
  4. GEMZAR [Suspect]
     Active Substance: GEMCITABINE HYDROCHLORIDE
     Indication: CERVIX CARCINOMA
     Dosage: UNK UNK, UNKNOWN
     Route: 065
     Dates: start: 2012, end: 2013

REACTIONS (3)
  - Off label use [Unknown]
  - Death [Fatal]
  - Malignant neoplasm progression [Unknown]

NARRATIVE: CASE EVENT DATE: 2012
